APPROVED DRUG PRODUCT: POTASSIUM CITRATE
Active Ingredient: POTASSIUM CITRATE
Strength: 10MEQ
Dosage Form/Route: TABLET, EXTENDED RELEASE;ORAL
Application: A209758 | Product #002 | TE Code: AB
Applicant: TEVA PHARMACEUTICALS USA INC
Approved: Mar 5, 2018 | RLD: No | RS: No | Type: RX